FAERS Safety Report 11808016 (Version 1)
Quarter: 2015Q4

REPORT INFORMATION
  Report Type: Spontaneous
  Country: JP (occurrence: JP)
  Receive Date: 20151207
  Receipt Date: 20151207
  Transmission Date: 20160305
  Serious: Yes (Hospitalization)
  Sender: FDA-Public Use
  Company Number: PHHY2015JP159484

PATIENT
  Age: 78 Year
  Sex: Male

DRUGS (4)
  1. OZAGREL [Suspect]
     Active Substance: OZAGREL
     Indication: ISCHAEMIC STROKE
     Route: 065
  2. HEPARIN [Suspect]
     Active Substance: HEPARIN SODIUM
     Indication: ISCHAEMIC STROKE
     Route: 065
  3. ACETYLSALICYLIC ACID [Suspect]
     Active Substance: ASPIRIN
     Indication: ISCHAEMIC STROKE
     Route: 048
  4. TICLOPIDINE [Suspect]
     Active Substance: TICLOPIDINE
     Indication: ISCHAEMIC STROKE
     Route: 065

REACTIONS (1)
  - Muscle haemorrhage [Unknown]
